FAERS Safety Report 5285716-X (Version None)
Quarter: 2007Q1

REPORT INFORMATION
  Report Type: 
  Country: None (occurrence: None)
  Receive Date: 20070126
  Receipt Date: 20061120
  Transmission Date: 20070707
  Serious: No
  Sender: FDA-Public Use
  Company Number: 2006-BP-13721BP

PATIENT

DRUGS (1)
  1. APTIVUS/RITONAVIR CAPSULES (TIPRANAVIR W/RITONAVIR) [Suspect]
     Indication: HIV INFECTION
     Dosage: (SEE TEXT,250 MG/100 MG),PO
     Route: 048

REACTIONS (1)
  - DRUG TOXICITY [None]
